FAERS Safety Report 12937696 (Version 1)
Quarter: 2016Q4

REPORT INFORMATION
  Report Type: Spontaneous
  Country: CN (occurrence: CN)
  Receive Date: 20161114
  Receipt Date: 20161114
  Transmission Date: 20170207
  Serious: Yes (Death, Other)
  Sender: FDA-Public Use
  Company Number: CN-JNJFOC-20161104563

PATIENT

DRUGS (6)
  1. INFLIXIMAB [Suspect]
     Active Substance: INFLIXIMAB
     Indication: PSORIATIC ARTHROPATHY
     Route: 042
  2. INFLIXIMAB [Suspect]
     Active Substance: INFLIXIMAB
     Indication: RHEUMATOID ARTHRITIS
     Route: 042
  3. INFLIXIMAB [Suspect]
     Active Substance: INFLIXIMAB
     Indication: INFLAMMATORY BOWEL DISEASE
     Route: 042
  4. INFLIXIMAB [Suspect]
     Active Substance: INFLIXIMAB
     Indication: PSORIASIS
     Route: 042
  5. INFLIXIMAB [Suspect]
     Active Substance: INFLIXIMAB
     Indication: JUVENILE IDIOPATHIC ARTHRITIS
     Route: 042
  6. INFLIXIMAB [Suspect]
     Active Substance: INFLIXIMAB
     Indication: ANKYLOSING SPONDYLITIS
     Route: 042

REACTIONS (28)
  - Upper respiratory tract infection [Recovered/Resolved]
  - Hypertension [Unknown]
  - Laryngeal oedema [Unknown]
  - Disseminated tuberculosis [Recovered/Resolved]
  - Dizziness [Unknown]
  - Fungal infection [Unknown]
  - Headache [Unknown]
  - Pyrexia [Unknown]
  - Abscess [Unknown]
  - Aplastic anaemia [Fatal]
  - Respiratory disorder [Unknown]
  - Tooth injury [Unknown]
  - Infusion related reaction [Unknown]
  - Leukopenia [Unknown]
  - Hepatic function abnormal [Unknown]
  - Arthralgia [Unknown]
  - Asthenia [Unknown]
  - Infusion site rash [Unknown]
  - Liver function test abnormal [Unknown]
  - Pulmonary tuberculosis [Recovered/Resolved]
  - Haemorrhage [Fatal]
  - Urticaria [Unknown]
  - Eczema [Unknown]
  - Hypotension [Unknown]
  - Gastroenteritis [Unknown]
  - Pulpitis dental [Recovered/Resolved]
  - Pneumonia [Unknown]
  - Central nervous system infection [Fatal]
